FAERS Safety Report 5411228-6 (Version None)
Quarter: 2007Q3

REPORT INFORMATION
  Report Type: 
  Country: None (occurrence: None)
  Receive Date: 20070810
  Receipt Date: 20070808
  Transmission Date: 20080115
  Serious: Yes (Hospitalization)
  Sender: FDA-Public Use
  Company Number: B0482389A

PATIENT
  Age: 61 Year
  Sex: Male

DRUGS (1)
  1. ARIXTRA [Suspect]
     Indication: DEEP VEIN THROMBOSIS
     Route: 058

REACTIONS (5)
  - ANAEMIA [None]
  - HAEMATEMESIS [None]
  - HYPERHIDROSIS [None]
  - OESOPHAGEAL ULCER [None]
  - PALLOR [None]
